FAERS Safety Report 23660732 (Version 1)
Quarter: 2024Q1

REPORT INFORMATION
  Report Type: Spontaneous
  Country: GB (occurrence: GB)
  Receive Date: 20240322
  Receipt Date: 20240322
  Transmission Date: 20240410
  Serious: Yes (Other)
  Sender: FDA-Public Use
  Company Number: None

PATIENT
  Sex: Female

DRUGS (1)
  1. LEVONORGESTREL [Suspect]
     Active Substance: LEVONORGESTREL
     Indication: Product used for unknown indication
     Dosage: TIME INTERVAL: AS NECESSARY
     Route: 065
     Dates: start: 20240303

REACTIONS (4)
  - Intermenstrual bleeding [Unknown]
  - Menstruation irregular [Unknown]
  - Uterine spasm [Unknown]
  - Headache [Unknown]

NARRATIVE: CASE EVENT DATE: 20240301
